FAERS Safety Report 9207505 (Version 1)
Quarter: 2013Q2

REPORT INFORMATION
  Report Type: Spontaneous
  Country: GB (occurrence: GB)
  Receive Date: 20130403
  Receipt Date: 20130403
  Transmission Date: 20140414
  Serious: Yes (Other)
  Sender: FDA-Public Use
  Company Number: GB-ASTRAZENECA-2013SE19855

PATIENT
  Age: 55 Year
  Sex: Female
  Weight: 83.2 kg

DRUGS (7)
  1. TICAGRELOR [Suspect]
     Indication: ACUTE MYOCARDIAL INFARCTION
     Route: 048
     Dates: start: 20120719, end: 20130105
  2. ASPIRIN [Concomitant]
  3. BISOPROLOL [Concomitant]
  4. LOSARTAN [Concomitant]
  5. OMEPRAZOLE [Concomitant]
  6. SIMVASTATIN [Concomitant]
  7. SPIRONOLACTONE [Concomitant]

REACTIONS (3)
  - Cardiac failure [Recovered/Resolved]
  - Condition aggravated [Unknown]
  - Dyspnoea [Recovered/Resolved]
